FAERS Safety Report 4467846-5 (Version None)
Quarter: 2004Q4

REPORT INFORMATION
  Report Type: 
  Country: None (occurrence: None)
  Receive Date: 20041004
  Receipt Date: 20040928
  Transmission Date: 20050328
  Serious: Yes (Hospitalization)
  Sender: FDA-Public Use
  Company Number: USA-2004-0016967

PATIENT
  Age: 33 Year
  Sex: Female

DRUGS (3)
  1. CEFDITOREN PIVOXIL (SIMILAR TO NDA 21-222) (CEFDITOREN PIVOXIL) OTHER [Suspect]
     Indication: INFECTION PROPHYLAXIS
     Dosage: 100 MG, DAILY,  ORAL
     Route: 048
     Dates: start: 20040824, end: 20040824
  2. ADONA (CARBAZOCHROME SODIUM SULFONATE) [Concomitant]
  3. TRANSAMIN (TRANEXAMIC ACID) [Concomitant]

REACTIONS (6)
  - ARTHRALGIA [None]
  - DIFFICULTY IN WALKING [None]
  - MUSCULAR WEAKNESS [None]
  - MUSCULOSKELETAL STIFFNESS [None]
  - PYREXIA [None]
  - TREMOR [None]
